FAERS Safety Report 20124580 (Version 1)
Quarter: 2021Q4

REPORT INFORMATION
  Report Type: Spontaneous
  Country: US (occurrence: None)
  Receive Date: 20211126
  Receipt Date: 20211126
  Transmission Date: 20220304
  Serious: No
  Sender: FDA-Public Use
  Company Number: None

PATIENT
  Sex: Female

DRUGS (2)
  1. SECRET DRY ROSE [Suspect]
     Active Substance: ALUMINUM CHLOROHYDRATE
     Dosage: OTHER ROUTE : DEODERANT;?
     Route: 050
  2. SECRET DRY ROSE [Suspect]
     Active Substance: ALUMINUM CHLOROHYDRATE

REACTIONS (1)
  - Skin irritation [None]
